FAERS Safety Report 9011563 (Version 1)
Quarter: 2013Q1

REPORT INFORMATION
  Report Type: Spontaneous
  Country: US (occurrence: US)
  Receive Date: 20130111
  Receipt Date: 20130111
  Transmission Date: 20140127
  Serious: Yes (Death)
  Sender: FDA-Public Use
  Company Number: US-FRI-1000038383

PATIENT
  Age: 41 Year
  Sex: Male
  Weight: 127 kg

DRUGS (7)
  1. VIIBRYD [Suspect]
     Indication: MAJOR DEPRESSION
     Dosage: 10 MG
     Route: 048
     Dates: start: 201201
  2. VIIBRYD [Suspect]
     Dosage: 20 MG
     Route: 048
  3. VIIBRYD [Suspect]
     Dosage: 40 MG
     Route: 048
     Dates: start: 201202
  4. WELLBUTRIN XL [Suspect]
     Indication: DEPRESSION
     Dosage: 300 MG
  5. ULTRAM [Suspect]
     Indication: PAIN
  6. PROPECIA [Concomitant]
     Indication: ALOPECIA
  7. ACYCLOVIR [Concomitant]
     Indication: HERPES VIRUS INFECTION

REACTIONS (1)
  - Accidental overdose [Fatal]
